FAERS Safety Report 4499322-8 (Version None)
Quarter: 2004Q3

REPORT INFORMATION
  Report Type: 
  Country: None (occurrence: None)
  Receive Date: 20040928
  Receipt Date: 20040728
  Transmission Date: 20050211
  Serious: No
  Sender: FDA-Public Use
  Company Number: 04P-163-0268645-00

PATIENT
  Age: 55 Year
  Sex: Female
  Weight: 86.1834 kg

DRUGS (7)
  1. HUMIRA [Suspect]
     Indication: RHEUMATOID ARTHRITIS
     Dosage: 40 MG, 1 IN 2 WK, SUBCUTANEOUS
     Route: 058
     Dates: start: 20040506
  2. ESOMEPRAZOLE [Concomitant]
  3. PRAMIPREXOLE DIHYDROCHLORIDE [Concomitant]
  4. GABAPENTIN [Concomitant]
  5. HYDROXYHLOROQUINE PHOSPHATE [Concomitant]
  6. PREDNISONE [Concomitant]
  7. METHOTREXATE SODIUM [Concomitant]

REACTIONS (2)
  - HYPERKERATOSIS [None]
  - RASH [None]
